FAERS Safety Report 20616817 (Version 2)
Quarter: 2022Q2

REPORT INFORMATION
  Report Type: Spontaneous
  Country: US (occurrence: US)
  Receive Date: 20220321
  Receipt Date: 20220517
  Transmission Date: 20220720
  Serious: No
  Sender: FDA-Public Use
  Company Number: US-PFIZER INC-202200365556

PATIENT
  Age: 38 Year
  Sex: Female

DRUGS (2)
  1. XELJANZ [Suspect]
     Active Substance: TOFACITINIB CITRATE
     Dosage: 10 MG
     Dates: start: 20210308
  2. PREDNISONE [Suspect]
     Active Substance: PREDNISONE
     Dosage: UNK

REACTIONS (3)
  - Blood pressure increased [Unknown]
  - Nasopharyngitis [Unknown]
  - Sinusitis [Unknown]
